FAERS Safety Report 11351740 (Version 1)
Quarter: 2015Q3

REPORT INFORMATION
  Report Type: Spontaneous
  Country: US (occurrence: US)
  Receive Date: 20150807
  Receipt Date: 20150807
  Transmission Date: 20151125
  Serious: No
  Sender: FDA-Public Use
  Company Number: US-JNJFOC-20150601353

PATIENT
  Age: 53 Year
  Sex: Female
  Weight: 85.73 kg

DRUGS (2)
  1. WOMENS ROGAINE UNSCENTED [Suspect]
     Active Substance: MINOXIDIL
     Route: 061
  2. WOMENS ROGAINE UNSCENTED [Suspect]
     Active Substance: MINOXIDIL
     Indication: ALOPECIA
     Dosage: SMALL AMOUNT, NOT EVEN A HALF A CAPFULL DAILY
     Route: 061

REACTIONS (2)
  - Incorrect dose administered [Recovering/Resolving]
  - Rash pruritic [Recovering/Resolving]
